FAERS Safety Report 12529935 (Version 1)
Quarter: 2016Q3

REPORT INFORMATION
  Report Type: Spontaneous
  Country: US (occurrence: None)
  Receive Date: 20160705
  Receipt Date: 20160705
  Transmission Date: 20161109
  Serious: Yes (Other)
  Sender: FDA-Public Use
  Company Number: None

PATIENT
  Age: 19 Year
  Sex: Female
  Weight: 59.88 kg

DRUGS (1)
  1. D-AMPHETAMINE SALT COM XR 20MG, 20 MG [Suspect]
     Active Substance: AMPHETAMINE ASPARTATE\AMPHETAMINE SULFATE\DEXTROAMPHETAMINE SACCHARATE\DEXTROAMPHETAMINE SULFATE
     Indication: ATTENTION DEFICIT/HYPERACTIVITY DISORDER
     Dosage: 30 CAPSULE(S) IN THE MORNING TAKEN BY MOUTH
     Route: 048
     Dates: start: 20160701, end: 20160702

REACTIONS (5)
  - Apathy [None]
  - Fatigue [None]
  - Headache [None]
  - Vomiting [None]
  - Drug effect delayed [None]

NARRATIVE: CASE EVENT DATE: 20160702
